FAERS Safety Report 21374966 (Version 1)
Quarter: 2022Q3

REPORT INFORMATION
  Report Type: Spontaneous
  Country: GB (occurrence: GB)
  Receive Date: 20220926
  Receipt Date: 20220926
  Transmission Date: 20221027
  Serious: Yes (Disabling, Other)
  Sender: FDA-Public Use
  Company Number: GB-MHRA-MED-202208290015067020-PLJGW

PATIENT
  Age: 52 Year
  Sex: Male
  Weight: 100 kg

DRUGS (2)
  1. DUTASTERIDE [Suspect]
     Active Substance: DUTASTERIDE
     Indication: Benign prostatic hyperplasia
     Dosage: UNIT DOSE : 5 MG,THERAPY START DATE : NOT ASKED
     Route: 065
     Dates: end: 20201020
  2. TAMSULOSIN [Suspect]
     Active Substance: TAMSULOSIN
     Indication: Benign prostatic hyperplasia
     Dosage: UNIT DOSE : 5 MG,THERAPY START DATE : NOT ASKED
     Route: 065
     Dates: end: 20201020

REACTIONS (5)
  - Penile necrosis [Not Recovered/Not Resolved]
  - Cognitive disorder [Not Recovered/Not Resolved]
  - Depression suicidal [Not Recovered/Not Resolved]
  - Erectile dysfunction [Not Recovered/Not Resolved]
  - Loss of libido [Not Recovered/Not Resolved]

NARRATIVE: CASE EVENT DATE: 20170101
